FAERS Safety Report 21492477 (Version 2)
Quarter: 2023Q1

REPORT INFORMATION
  Report Type: Spontaneous
  Country: US (occurrence: US)
  Receive Date: 20221021
  Receipt Date: 20230118
  Transmission Date: 20230418
  Serious: No
  Sender: FDA-Public Use
  Company Number: US-SA-SAC20221017000594

PATIENT
  Age: 10 Year
  Sex: Female

DRUGS (1)
  1. DUPIXENT [Suspect]
     Active Substance: DUPILUMAB
     Indication: Eczema
     Dosage: 300 MG, Q4W
     Route: 058

REACTIONS (6)
  - Headache [Unknown]
  - Eye pruritus [Unknown]
  - Eczema [Unknown]
  - Dry eye [Unknown]
  - Injection site pain [Unknown]
  - Therapeutic response decreased [Unknown]
